FAERS Safety Report 11113788 (Version 5)
Quarter: 2015Q4

REPORT INFORMATION
  Report Type: Other
  Country: US (occurrence: US)
  Receive Date: 20150514
  Receipt Date: 20151006
  Transmission Date: 20160304
  Serious: Yes (Other)
  Sender: FDA-Public Use
  Company Number: US-ACORDA-ACO_111417_2015

PATIENT
  Age: 64 Year
  Sex: Male
  Weight: 99.77 kg

DRUGS (5)
  1. AMPYRA [Suspect]
     Active Substance: DALFAMPRIDINE
     Indication: BALANCE DISORDER
     Dosage: 10 MG, Q 12 HRS
     Route: 048
     Dates: start: 20150828
  2. PROPRANOLOL [Concomitant]
     Active Substance: PROPRANOLOL\PROPRANOLOL HYDROCHLORIDE
     Indication: PRODUCT USED FOR UNKNOWN INDICATION
     Dosage: UNK
  3. AMPYRA [Suspect]
     Active Substance: DALFAMPRIDINE
     Indication: GAIT DISTURBANCE
     Dosage: 10 MG, Q 12 HRS
     Route: 048
     Dates: start: 20150304, end: 2015
  4. VITAMIN C [Concomitant]
     Active Substance: ASCORBIC ACID
     Indication: PRODUCT USED FOR UNKNOWN INDICATION
     Dosage: UNK
  5. VITAMIN D3 [Concomitant]
     Active Substance: CHOLECALCIFEROL
     Indication: PRODUCT USED FOR UNKNOWN INDICATION
     Dosage: UNK

REACTIONS (12)
  - Off label use [Unknown]
  - Therapeutic response unexpected [None]
  - Dizziness [Unknown]
  - Drug ineffective [Recovered/Resolved]
  - Muscular weakness [Unknown]
  - Condition aggravated [Unknown]
  - Fall [Not Recovered/Not Resolved]
  - Therapy cessation [Recovered/Resolved]
  - Temperature intolerance [Unknown]
  - Forearm fracture [Recovered/Resolved]
  - Abnormal dreams [Unknown]
  - Gait disturbance [Recovered/Resolved]

NARRATIVE: CASE EVENT DATE: 2015
